FAERS Safety Report 5523723-X (Version None)
Quarter: 2007Q4

REPORT INFORMATION
  Report Type: 
  Country: None (occurrence: None)
  Receive Date: 20071121
  Receipt Date: 20071114
  Transmission Date: 20080405
  Serious: Yes (Hospitalization, Other)
  Sender: FDA-Public Use
  Company Number: IL-ABBOTT-07P-082-0424612-00

PATIENT
  Age: 85 Year
  Weight: 65 kg

DRUGS (10)
  1. HUMIRA [Suspect]
     Indication: ANKYLOSING SPONDYLITIS
     Route: 058
     Dates: start: 20071001
  2. ACETYLSALICYLIC ACID SRT [Concomitant]
     Indication: MYOCARDIAL ISCHAEMIA
     Route: 048
     Dates: start: 19990101
  3. AMIODARONE HCL [Concomitant]
     Indication: SINUS BRADYCARDIA
     Route: 048
     Dates: start: 19990101
  4. SIMVASTATIN [Concomitant]
     Indication: MYOCARDIAL ISCHAEMIA
     Route: 048
     Dates: start: 19990101
  5. ATENOLOL [Concomitant]
     Indication: MYOCARDIAL ISCHAEMIA
     Route: 048
     Dates: start: 19990101
  6. METHOTREXATE [Concomitant]
     Indication: ANKYLOSING SPONDYLITIS
     Route: 048
  7. OMEPRAZOLE [Concomitant]
     Indication: GASTRITIS ATROPHIC
     Route: 048
  8. PAROXETINE [Concomitant]
     Indication: DRUG USE FOR UNKNOWN INDICATION
     Route: 048
  9. ZOLPIDEM TARTRATE [Concomitant]
     Indication: DRUG USE FOR UNKNOWN INDICATION
     Route: 048
  10. CAPTOPRIL [Concomitant]
     Indication: MYOCARDIAL ISCHAEMIA
     Route: 048

REACTIONS (5)
  - CONFUSIONAL STATE [None]
  - COUGH [None]
  - DYSPNOEA [None]
  - HAEMOPTYSIS [None]
  - PNEUMONIA LEGIONELLA [None]
